FAERS Safety Report 20343586 (Version 3)
Quarter: 2022Q1

REPORT INFORMATION
  Report Type: Report from Study
  Country: US (occurrence: US)
  Receive Date: 20220118
  Receipt Date: 20220216
  Transmission Date: 20220424
  Serious: Yes (Hospitalization)
  Sender: FDA-Public Use
  Company Number: US-ORG100014127-2022000045

PATIENT
  Age: 40 Year
  Sex: Female

DRUGS (11)
  1. LYSODREN [Suspect]
     Active Substance: MITOTANE
     Dosage: 1 TABLET TWICE DAILY
     Route: 048
     Dates: start: 20211208
  2. LYSODREN [Suspect]
     Active Substance: MITOTANE
     Dosage: 4 TABLET TWICE DAILY
     Route: 048
  3. METOPIRONE [Suspect]
     Active Substance: METYRAPONE
     Dosage: 2 PILLS TWICE DAILY
  4. CISPLATIN [Concomitant]
     Active Substance: CISPLATIN
     Dates: start: 20211228
  5. CISPLATIN [Concomitant]
     Active Substance: CISPLATIN
     Dates: start: 20220128
  6. DOXORUBICIN [Concomitant]
     Active Substance: DOXORUBICIN
     Dates: start: 20211228
  7. DOXORUBICIN [Concomitant]
     Active Substance: DOXORUBICIN
     Dates: start: 20220128
  8. ETOPOSIDE [Concomitant]
     Active Substance: ETOPOSIDE
     Dates: start: 20211228
  9. ETOPOSIDE [Concomitant]
     Active Substance: ETOPOSIDE
     Dates: start: 20220128
  10. METOPROLOL [Concomitant]
     Active Substance: METOPROLOL
  11. METOPROLOL [Concomitant]
     Active Substance: METOPROLOL

REACTIONS (2)
  - Heart rate increased [Recovering/Resolving]
  - Off label use [Not Recovered/Not Resolved]

NARRATIVE: CASE EVENT DATE: 20220104
